FAERS Safety Report 5447398-3 (Version None)
Quarter: 2007Q3

REPORT INFORMATION
  Report Type: 
  Country: None (occurrence: None)
  Receive Date: 20070905
  Receipt Date: 20070905
  Transmission Date: 20080115
  Serious: Yes (Hospitalization, Other)
  Sender: FDA-Public Use
  Company Number: None

PATIENT
  Age: 59 Year
  Sex: Female
  Weight: 62.1428 kg

DRUGS (1)
  1. PROPOFOL [Suspect]
     Indication: SEDATIVE THERAPY
     Dosage: LOW DOSE FOR SURGERY/ CATARACT   ONCE  IV DRIP
     Route: 041
     Dates: start: 20070827, end: 20070827

REACTIONS (4)
  - CHILLS [None]
  - HYPERHIDROSIS [None]
  - POST PROCEDURAL COMPLICATION [None]
  - PYREXIA [None]
